FAERS Safety Report 4690948-5 (Version None)
Quarter: 2005Q2

REPORT INFORMATION
  Report Type: 
  Country: None (occurrence: None)
  Receive Date: 20050610
  Receipt Date: 20050601
  Transmission Date: 20051028
  Serious: Yes (Life-Threatening)
  Sender: FDA-Public Use
  Company Number: HQWYE746416MAY05

PATIENT
  Age: 58 Year
  Sex: Female

DRUGS (8)
  1. MINOMYCIN (MINOCYCLINE, INJECTION) [Suspect]
     Indication: PNEUMONIA
     Dosage: 200 MG/DAY INTRAVENOUS DRIP
     Route: 041
     Dates: start: 20050509, end: 20050512
  2. OMEPRAZOLE [Concomitant]
  3. MAXIPIME [Concomitant]
  4. ALBUMIN (HUMAN) [Concomitant]
  5. BISOLVON (BROMHEXINE HYDROHCLORIDE) [Concomitant]
  6. NEOPHAGEN (GLYCYRRHIZINATE POTASSIUM) [Concomitant]
  7. LEPETAN (BUPRENORPHINE HYDROCHLORIDE) [Concomitant]
  8. MIDAZOLAM HCL [Concomitant]

REACTIONS (5)
  - DISEASE PROGRESSION [None]
  - HAEMODIALYSIS [None]
  - HEPATIC FAILURE [None]
  - PLATELET COUNT DECREASED [None]
  - PNEUMONIA [None]
